FAERS Safety Report 5812212-0 (Version None)
Quarter: 2008Q3

REPORT INFORMATION
  Report Type: 
  Country: None (occurrence: None)
  Receive Date: 20080714
  Receipt Date: 20080709
  Transmission Date: 20090109
  Serious: Yes (Hospitalization, Other)
  Sender: FDA-Public Use
  Company Number: 2008SP008987

PATIENT
  Age: 74 Year
  Sex: Male

DRUGS (8)
  1. PEGATRON (PEGINTERFERON ALFA-2B W/RIBAVIRIN) (PEGYLATED INTERFERON ALF [Suspect]
     Indication: HEPATITIS C
     Dosage: 100 MCG; QW; SC, 100 MG; QD; PO
     Route: 058
     Dates: start: 20080510
  2. PEGATRON (PEGINTERFERON ALFA-2B W/RIBAVIRIN) (PEGYLATED INTERFERON ALF [Suspect]
     Indication: HEPATITIS C
     Dosage: 100 MCG; QW; SC, 100 MG; QD; PO
     Route: 058
     Dates: start: 20080510
  3. ASPIRIN [Concomitant]
  4. ATACAND HCT [Concomitant]
  5. ATENOLOL [Concomitant]
  6. RAMIPRIL [Concomitant]
  7. AMLODIPINE [Concomitant]
  8. FUROSEMIDE [Concomitant]

REACTIONS (3)
  - CHEST PAIN [None]
  - HYPERTENSION [None]
  - VISION BLURRED [None]
